FAERS Safety Report 12258333 (Version 2)
Quarter: 2016Q3

REPORT INFORMATION
  Report Type: Spontaneous
  Country: US (occurrence: US)
  Receive Date: 20160412
  Receipt Date: 20160830
  Transmission Date: 20161109
  Serious: Yes (Other)
  Sender: FDA-Public Use
  Company Number: US-LUNDBECK-DKLU2012139

PATIENT
  Sex: Female

DRUGS (5)
  1. ONFI [Suspect]
     Active Substance: CLOBAZAM
     Route: 065
  2. DEPAKOTE ER [Concomitant]
     Active Substance: DIVALPROEX SODIUM
     Indication: EPILEPSY
     Route: 065
  3. ONFI [Suspect]
     Active Substance: CLOBAZAM
     Indication: JUVENILE MYOCLONIC EPILEPSY
     Route: 065
     Dates: start: 20160330
  4. ONFI [Suspect]
     Active Substance: CLOBAZAM
     Route: 065
  5. ZONEGRAN [Concomitant]
     Active Substance: ZONISAMIDE
     Indication: EPILEPSY
     Route: 065

REACTIONS (2)
  - Drug withdrawal convulsions [Unknown]
  - Sedation [Recovering/Resolving]
